FAERS Safety Report 6432725-0 (Version None)
Quarter: 2009Q4

REPORT INFORMATION
  Report Type: 
  Country: None (occurrence: None)
  Receive Date: 20091109
  Receipt Date: 20090924
  Transmission Date: 20100525
  Serious: No
  Sender: FDA-Public Use
  Company Number: US-BAYER-200918124NA

PATIENT
  Age: 62 Year
  Sex: Female

DRUGS (3)
  1. ULTRAVIST 300 [Suspect]
     Indication: COMPUTERISED TOMOGRAM ABDOMEN
     Dosage: TOTAL DAILY DOSE: 84 ML  UNIT DOSE: 200 ML
     Route: 042
     Dates: start: 20090331, end: 20090331
  2. CREON [Concomitant]
  3. VOLUMEN [Concomitant]
     Dosage: X2
     Route: 048
     Dates: start: 20090331, end: 20090331

REACTIONS (2)
  - PRURITUS [None]
  - URTICARIA [None]
